FAERS Safety Report 10365493 (Version 1)
Quarter: 2014Q3

REPORT INFORMATION
  Report Type: Spontaneous
  Country: US (occurrence: None)
  Receive Date: 20140805
  Receipt Date: 20140805
  Transmission Date: 20150326
  Serious: Yes (Other)
  Sender: FDA-Public Use
  Company Number: None

PATIENT
  Age: 23 Year
  Sex: Male
  Weight: 90.72 kg

DRUGS (3)
  1. ZIPRASIDONE [Suspect]
     Active Substance: ZIPRASIDONE
     Indication: AFFECTIVE DISORDER
     Route: 048
     Dates: start: 20140523, end: 20140613
  2. CLOZAPINE. [Suspect]
     Active Substance: CLOZAPINE
     Indication: SCHIZOPHRENIA
     Route: 048
     Dates: start: 20120201, end: 20140804
  3. ZIPRASIDONE [Suspect]
     Active Substance: ZIPRASIDONE
     Indication: PSYCHOTIC DISORDER
     Route: 048
     Dates: start: 20140523, end: 20140613

REACTIONS (4)
  - Electrocardiogram ST-T change [None]
  - Sinus tachycardia [None]
  - Right ventricular hypertrophy [None]
  - Potentiating drug interaction [None]

NARRATIVE: CASE EVENT DATE: 20140619
